FAERS Safety Report 11124090 (Version 2)
Quarter: 2015Q3

REPORT INFORMATION
  Report Type: Report from Study
  Country: US (occurrence: US)
  Receive Date: 20150520
  Receipt Date: 20150929
  Transmission Date: 20151125
  Serious: Yes (Other)
  Sender: FDA-Public Use
  Company Number: US-ROCHE-1578952

PATIENT

DRUGS (2)
  1. VEMURAFENIB [Suspect]
     Active Substance: VEMURAFENIB
     Indication: METASTATIC MALIGNANT MELANOMA
     Dosage: FOR 6 WEEKS
     Route: 065
  2. IPILIMUMAB [Suspect]
     Active Substance: IPILIMUMAB
     Indication: METASTATIC MALIGNANT MELANOMA
     Dosage: Q3W X FOUR DOSES THEN Q12W BEGINING AT WEEK 24 UNTIL DISEASE PROGRESSION OR UNACCEPTABLE TOXICITY
     Route: 065

REACTIONS (4)
  - Rash [Unknown]
  - Hyperbilirubinaemia [Unknown]
  - Hepatitis [Unknown]
  - Diarrhoea [Unknown]
